FAERS Safety Report 6407323-5 (Version None)
Quarter: 2009Q4

REPORT INFORMATION
  Report Type: 
  Country: None (occurrence: None)
  Receive Date: 20091020
  Receipt Date: 20091020
  Transmission Date: 20100525
  Serious: Yes (Hospitalization)
  Sender: FDA-Public Use
  Company Number: B0594819A

PATIENT
  Sex: Male
  Weight: 32 kg

DRUGS (5)
  1. ZIDOVUDINE [Suspect]
     Indication: HIV INFECTION
     Dosage: 300MG TWICE PER DAY
     Dates: start: 20070905, end: 20090925
  2. LAMIVUDINE [Suspect]
     Indication: HIV INFECTION
     Dosage: 300MG PER DAY
     Dates: start: 20070905
  3. ABACAVIR [Suspect]
     Indication: HIV INFECTION
     Dosage: 600MG PER DAY
     Route: 065
     Dates: start: 20070905
  4. COTRIM [Suspect]
     Indication: DRUG USE FOR UNKNOWN INDICATION
     Dosage: 960MG PER DAY
     Route: 065
     Dates: start: 20071003, end: 20090918
  5. MULTI-VITAMIN [Concomitant]
     Dosage: 1TAB PER DAY
     Route: 065

REACTIONS (15)
  - ANAEMIA [None]
  - ARTHRALGIA [None]
  - ASTHENIA [None]
  - CARDIAC FAILURE [None]
  - CHILLS [None]
  - DYSPNOEA EXERTIONAL [None]
  - FATIGUE [None]
  - HEART RATE IRREGULAR [None]
  - MUCOSAL DISCOLOURATION [None]
  - MYALGIA [None]
  - NEUTROPENIA [None]
  - PALPITATIONS [None]
  - PERIORBITAL OEDEMA [None]
  - PYREXIA [None]
  - TRANSFUSION REACTION [None]
